FAERS Safety Report 17055392 (Version 2)
Quarter: 2019Q4

REPORT INFORMATION
  Report Type: Report from Study
  Country: US (occurrence: US)
  Receive Date: 20191120
  Receipt Date: 20191220
  Transmission Date: 20200122
  Serious: Yes (Hospitalization)
  Sender: FDA-Public Use
  Company Number: US-ACTELION-A-NJ2019-186192

PATIENT
  Age: 67 Year
  Sex: Male

DRUGS (15)
  1. TRACLEER [Suspect]
     Active Substance: BOSENTAN
     Indication: PULMONARY ARTERIAL HYPERTENSION
     Dosage: 62.5 MG, BID X 4 WEEKS THEN 125 MG BID
     Route: 048
     Dates: start: 20190104
  2. TRACLEER [Suspect]
     Active Substance: BOSENTAN
     Dosage: 125 MG, BID
     Route: 048
  3. ALBUTEROL. [Concomitant]
     Active Substance: ALBUTEROL
  4. METOLAZONE. [Concomitant]
     Active Substance: METOLAZONE
  5. NOVOLOG [Concomitant]
     Active Substance: INSULIN ASPART
  6. ATORVASTATIN [Concomitant]
     Active Substance: ATORVASTATIN
  7. SPIRIVA [Concomitant]
     Active Substance: TIOTROPIUM BROMIDE MONOHYDRATE
  8. TADALAFIL. [Concomitant]
     Active Substance: TADALAFIL
  9. TORSEMIDE. [Concomitant]
     Active Substance: TORSEMIDE
  10. LEVEMIR [Concomitant]
     Active Substance: INSULIN DETEMIR
  11. BUDESONIDE. [Concomitant]
     Active Substance: BUDESONIDE
  12. GLIMEPIRIDE. [Concomitant]
     Active Substance: GLIMEPIRIDE
  13. METFORMIN [Concomitant]
     Active Substance: METFORMIN HYDROCHLORIDE
  14. POTASSIUM CHLORIDE. [Concomitant]
     Active Substance: POTASSIUM CHLORIDE
  15. FUROSEMIDE. [Concomitant]
     Active Substance: FUROSEMIDE

REACTIONS (4)
  - Fluid retention [Recovered/Resolved]
  - Peripheral swelling [Unknown]
  - Hospitalisation [Recovered/Resolved]
  - Oedema [Unknown]

NARRATIVE: CASE EVENT DATE: 201901
